FAERS Safety Report 17720153 (Version 3)
Quarter: 2023Q2

REPORT INFORMATION
  Report Type: Spontaneous
  Country: US (occurrence: US)
  Receive Date: 20200428
  Receipt Date: 20230522
  Transmission Date: 20230722
  Serious: Yes (Other)
  Sender: FDA-Public Use
  Company Number: US-NAPPMUNDI-USA-2020-0152048

PATIENT
  Sex: Male

DRUGS (8)
  1. OXYCONTIN [Suspect]
     Active Substance: OXYCODONE HYDROCHLORIDE
     Indication: Pain
     Dosage: 80 OR 90MG EVERY 8 HOURS
     Route: 048
  2. OXYCONTIN [Suspect]
     Active Substance: OXYCODONE HYDROCHLORIDE
     Dosage: 80 MILLIGRAM, Q12H
     Route: 048
  3. OXYCODONE HYDROCHLORIDE [Suspect]
     Active Substance: OXYCODONE HYDROCHLORIDE
     Indication: Injury
     Dosage: 240 MILLIGRAM UNKNOWN
     Route: 048
  4. MS CONTIN [Suspect]
     Active Substance: MORPHINE SULFATE
     Indication: Pain
     Dosage: UNKNOWN
     Route: 048
  5. MORPHINE SULFATE [Suspect]
     Active Substance: MORPHINE SULFATE
     Indication: Injury
     Dosage: 90 MILLIGRAM UNKNOWN
     Route: 048
  6. VICODIN [Suspect]
     Active Substance: ACETAMINOPHEN\HYDROCODONE BITARTRATE
     Indication: Injury
     Dosage: 10MG EVERY 8 HOURS
     Route: 048
  7. OXYCODONE HYDROCHLORIDE [Concomitant]
     Active Substance: OXYCODONE HYDROCHLORIDE
     Indication: Breakthrough pain
     Dosage: 30 MILLIGRAM, PRN
     Route: 065
  8. OXYCODONE HYDROCHLORIDE [Concomitant]
     Active Substance: OXYCODONE HYDROCHLORIDE
     Indication: Pain
     Dosage: 30 MILLIGRAM UNKNOWN
     Route: 048

REACTIONS (11)
  - Suicidal ideation [Unknown]
  - Diabetes mellitus [Not Recovered/Not Resolved]
  - Poisoning [Unknown]
  - Drug dependence [Not Recovered/Not Resolved]
  - Muscle spasms [Unknown]
  - Hypertension [Not Recovered/Not Resolved]
  - Illness [Unknown]
  - Diarrhoea [Unknown]
  - Therapeutic product effect decreased [Recovered/Resolved]
  - Inadequate analgesia [Unknown]
  - Unevaluable event [Unknown]
